FAERS Safety Report 20838315 (Version 1)
Quarter: 2022Q2

REPORT INFORMATION
  Report Type: Spontaneous
  Country: NL (occurrence: NL)
  Receive Date: 20220517
  Receipt Date: 20220517
  Transmission Date: 20220721
  Serious: Yes (Other)
  Sender: FDA-Public Use
  Company Number: NL-GYP-001063

PATIENT
  Age: 5 Day
  Sex: Female

DRUGS (4)
  1. PREDNISONE [Suspect]
     Active Substance: PREDNISONE
     Indication: Angiosarcoma
     Route: 065
  2. PREDNISONE [Suspect]
     Active Substance: PREDNISONE
     Indication: Haemangioma-thrombocytopenia syndrome
     Route: 065
  3. PREDNISONE [Suspect]
     Active Substance: PREDNISONE
     Indication: Angiosarcoma
     Route: 065
  4. PREDNISONE [Suspect]
     Active Substance: PREDNISONE
     Indication: Haemangioma-thrombocytopenia syndrome
     Route: 065

REACTIONS (4)
  - Angiosarcoma [Recovered/Resolved]
  - Haemangioma-thrombocytopenia syndrome [Recovered/Resolved]
  - Neoplasm progression [Recovered/Resolved]
  - Product use in unapproved indication [Unknown]
